FAERS Safety Report 11843795 (Version 1)
Quarter: 2015Q4

REPORT INFORMATION
  Report Type: Report from Study
  Country: US (occurrence: US)
  Receive Date: 20151217
  Receipt Date: 20151217
  Transmission Date: 20160305
  Serious: Yes (Other)
  Sender: FDA-Public Use
  Company Number: US-AMGEN-USASL2015134751

PATIENT
  Age: 49 Year
  Sex: Female

DRUGS (2)
  1. ENBREL [Suspect]
     Active Substance: ETANERCEPT
     Indication: PSORIATIC ARTHROPATHY
     Dosage: 50 MG, UNK
     Route: 065
     Dates: start: 20141203, end: 20150711
  2. ENBREL [Suspect]
     Active Substance: ETANERCEPT
     Dosage: 50 MG,  EVERY 15 DAYS
     Route: 065
     Dates: start: 20151213

REACTIONS (2)
  - Gastric bypass [Unknown]
  - Psoriasis [Unknown]
